FAERS Safety Report 11196459 (Version 2)
Quarter: 2015Q4

REPORT INFORMATION
  Report Type: Spontaneous
  Country: US (occurrence: US)
  Receive Date: 20150617
  Receipt Date: 20151105
  Transmission Date: 20160304
  Serious: Yes (Hospitalization)
  Sender: FDA-Public Use
  Company Number: US-BAYER-2015-351440

PATIENT
  Age: 30 Year
  Sex: Female
  Weight: 83.9 kg

DRUGS (4)
  1. BUTALBITAL, ACETAMINOPHEN, AND CAFFEINE [Concomitant]
     Active Substance: ACETAMINOPHEN\BUTALBITAL\CAFFEINE
     Indication: HEADACHE
  2. NAPROXEN. [Concomitant]
     Active Substance: NAPROXEN
     Dosage: 500 MG, UNK
  3. MIRENA [Suspect]
     Active Substance: LEVONORGESTREL
     Indication: CONTRACEPTION
     Dosage: 20 MCG/24HR, CONT
     Route: 015
     Dates: start: 20090520, end: 20131025
  4. MAXALT [Concomitant]
     Active Substance: RIZATRIPTAN BENZOATE

REACTIONS (6)
  - Injury [Not Recovered/Not Resolved]
  - Device difficult to use [None]
  - Embedded device [Not Recovered/Not Resolved]
  - Thrombophlebitis superficial [None]
  - Device issue [None]
  - Pain [Not Recovered/Not Resolved]

NARRATIVE: CASE EVENT DATE: 200909
